FAERS Safety Report 23218813 (Version 1)
Quarter: 2023Q4

REPORT INFORMATION
  Report Type: Spontaneous
  Country: MM (occurrence: MM)
  Receive Date: 20231122
  Receipt Date: 20231122
  Transmission Date: 20240110
  Serious: Yes (Death)
  Sender: FDA-Public Use
  Company Number: MM-JNJFOC-20231155135

PATIENT
  Age: 64 Year
  Sex: Male
  Weight: 33 kg

DRUGS (6)
  1. SIRTURO [Suspect]
     Active Substance: BEDAQUILINE FUMARATE
     Indication: Tuberculosis
     Route: 048
     Dates: start: 20231102
  2. LEVOFLOXACIN [Suspect]
     Active Substance: LEVOFLOXACIN
     Indication: Tuberculosis
     Route: 048
     Dates: start: 20231102
  3. CLOFAZIMINE [Suspect]
     Active Substance: CLOFAZIMINE
     Indication: Tuberculosis
     Route: 048
     Dates: start: 20231102
  4. PYRAZINAMIDE [Suspect]
     Active Substance: PYRAZINAMIDE
     Indication: Tuberculosis
     Route: 048
     Dates: start: 20231102
  5. ETHIONAMIDE [Suspect]
     Active Substance: ETHIONAMIDE
     Indication: Tuberculosis
     Route: 048
     Dates: start: 20231102
  6. PYRIDOXINE [Concomitant]
     Active Substance: PYRIDOXINE
     Indication: Infection prophylaxis
     Dosage: 200
     Dates: start: 20231102, end: 20231115

REACTIONS (2)
  - Respiratory distress [Fatal]
  - Toxicity to various agents [Fatal]

NARRATIVE: CASE EVENT DATE: 20231115
